FAERS Safety Report 21528149 (Version 1)
Quarter: 2022Q4

REPORT INFORMATION
  Report Type: Spontaneous
  Country: US (occurrence: US)
  Receive Date: 20221031
  Receipt Date: 20221031
  Transmission Date: 20230113
  Serious: No
  Sender: FDA-Public Use
  Company Number: US-RECKITT BENCKISER HEALTHCARE INT LIMITED-RB-96749-2021

PATIENT
  Sex: Female

DRUGS (2)
  1. MUCINEX [Suspect]
     Active Substance: GUAIFENESIN
     Indication: Dysphonia
     Dosage: TOOK 1-2 TABLETS EVERYDAY FOR THREE DAYS
     Route: 065
     Dates: start: 20210925, end: 20210927
  2. MUCINEX [Suspect]
     Active Substance: GUAIFENESIN
     Indication: Illness

REACTIONS (2)
  - Cold sweat [Unknown]
  - Drug ineffective for unapproved indication [Not Recovered/Not Resolved]

NARRATIVE: CASE EVENT DATE: 20210927
